FAERS Safety Report 9709313 (Version 1)
Quarter: 2013Q4

REPORT INFORMATION
  Report Type: Spontaneous
  Country: US (occurrence: US)
  Receive Date: 20131125
  Receipt Date: 20131125
  Transmission Date: 20140711
  Serious: No
  Sender: FDA-Public Use
  Company Number: US-009507513-1309USA012094

PATIENT
  Sex: Male

DRUGS (6)
  1. CLARITIN [Suspect]
     Indication: FOOD ALLERGY
     Dosage: 10 MG, QD
     Route: 048
  2. CLARITIN [Suspect]
     Indication: RHINORRHOEA
  3. CLARITIN [Suspect]
     Indication: SKIN DISORDER
  4. BENADRYL [Suspect]
     Indication: FOOD ALLERGY
     Dosage: 0.5 DF, UNKNOWN
  5. BENADRYL [Suspect]
     Indication: RHINORRHOEA
  6. BENADRYL [Suspect]
     Indication: SKIN DISORDER

REACTIONS (1)
  - Dysuria [Unknown]
